FAERS Safety Report 19581893 (Version 12)
Quarter: 2024Q2

REPORT INFORMATION
  Report Type: Report from Study
  Country: DE (occurrence: DE)
  Receive Date: 20210719
  Receipt Date: 20240627
  Transmission Date: 20240716
  Serious: Yes (Hospitalization)
  Sender: FDA-Public Use
  Company Number: DE-SHIRE-DE202024241

PATIENT
  Age: 57 Year
  Sex: Female

DRUGS (214)
  1. TEDUGLUTIDE [Suspect]
     Active Substance: TEDUGLUTIDE
     Indication: Short-bowel syndrome
     Dosage: 2.55 MILLIGRAM, QD
     Route: 042
     Dates: start: 20150105, end: 20150701
  2. TEDUGLUTIDE [Suspect]
     Active Substance: TEDUGLUTIDE
     Indication: Short-bowel syndrome
     Dosage: 2.55 MILLIGRAM, QD
     Route: 042
     Dates: start: 20150105, end: 20150701
  3. TEDUGLUTIDE [Suspect]
     Active Substance: TEDUGLUTIDE
     Indication: Short-bowel syndrome
     Dosage: 2.55 MILLIGRAM, QD
     Route: 042
     Dates: start: 20150105, end: 20150701
  4. TEDUGLUTIDE [Suspect]
     Active Substance: TEDUGLUTIDE
     Indication: Short-bowel syndrome
     Dosage: 2.55 MILLIGRAM, QD
     Route: 042
     Dates: start: 20150105, end: 20150701
  5. TEDUGLUTIDE [Suspect]
     Active Substance: TEDUGLUTIDE
     Dosage: 2.55 MILLIGRAM, 2/WEEK
     Route: 042
     Dates: start: 20150702, end: 20150705
  6. TEDUGLUTIDE [Suspect]
     Active Substance: TEDUGLUTIDE
     Dosage: 2.55 MILLIGRAM, 2/WEEK
     Route: 042
     Dates: start: 20150702, end: 20150705
  7. TEDUGLUTIDE [Suspect]
     Active Substance: TEDUGLUTIDE
     Dosage: 2.55 MILLIGRAM, 2/WEEK
     Route: 042
     Dates: start: 20150702, end: 20150705
  8. TEDUGLUTIDE [Suspect]
     Active Substance: TEDUGLUTIDE
     Dosage: 2.55 MILLIGRAM, 2/WEEK
     Route: 042
     Dates: start: 20150702, end: 20150705
  9. TEDUGLUTIDE [Suspect]
     Active Substance: TEDUGLUTIDE
     Dosage: 2.55 MILLIGRAM, 4/WEEK
     Route: 042
     Dates: start: 20150706, end: 20150712
  10. TEDUGLUTIDE [Suspect]
     Active Substance: TEDUGLUTIDE
     Dosage: 2.55 MILLIGRAM, 4/WEEK
     Route: 042
     Dates: start: 20150706, end: 20150712
  11. TEDUGLUTIDE [Suspect]
     Active Substance: TEDUGLUTIDE
     Dosage: 2.55 MILLIGRAM, 4/WEEK
     Route: 042
     Dates: start: 20150706, end: 20150712
  12. TEDUGLUTIDE [Suspect]
     Active Substance: TEDUGLUTIDE
     Dosage: 2.55 MILLIGRAM, 4/WEEK
     Route: 042
     Dates: start: 20150706, end: 20150712
  13. TEDUGLUTIDE [Suspect]
     Active Substance: TEDUGLUTIDE
     Dosage: 2.55 MILLIGRAM, 3/WEEK
     Route: 042
     Dates: start: 20150713, end: 20150719
  14. TEDUGLUTIDE [Suspect]
     Active Substance: TEDUGLUTIDE
     Dosage: 2.55 MILLIGRAM, 3/WEEK
     Route: 042
     Dates: start: 20150713, end: 20150719
  15. TEDUGLUTIDE [Suspect]
     Active Substance: TEDUGLUTIDE
     Dosage: 2.55 MILLIGRAM, 3/WEEK
     Route: 042
     Dates: start: 20150713, end: 20150719
  16. TEDUGLUTIDE [Suspect]
     Active Substance: TEDUGLUTIDE
     Dosage: 2.55 MILLIGRAM, 3/WEEK
     Route: 042
     Dates: start: 20150713, end: 20150719
  17. TEDUGLUTIDE [Suspect]
     Active Substance: TEDUGLUTIDE
     Dosage: 2.55 MILLIGRAM, 4/WEEK
     Route: 042
     Dates: start: 20150720, end: 20150726
  18. TEDUGLUTIDE [Suspect]
     Active Substance: TEDUGLUTIDE
     Dosage: 2.55 MILLIGRAM, 4/WEEK
     Route: 042
     Dates: start: 20150720, end: 20150726
  19. TEDUGLUTIDE [Suspect]
     Active Substance: TEDUGLUTIDE
     Dosage: 2.55 MILLIGRAM, 4/WEEK
     Route: 042
     Dates: start: 20150720, end: 20150726
  20. TEDUGLUTIDE [Suspect]
     Active Substance: TEDUGLUTIDE
     Dosage: 2.55 MILLIGRAM, 4/WEEK
     Route: 042
     Dates: start: 20150720, end: 20150726
  21. TEDUGLUTIDE [Suspect]
     Active Substance: TEDUGLUTIDE
     Dosage: 2.55 MILLIGRAM, 3/WEEK
     Route: 042
     Dates: start: 20150727, end: 20150802
  22. TEDUGLUTIDE [Suspect]
     Active Substance: TEDUGLUTIDE
     Dosage: 2.55 MILLIGRAM, 3/WEEK
     Route: 042
     Dates: start: 20150727, end: 20150802
  23. TEDUGLUTIDE [Suspect]
     Active Substance: TEDUGLUTIDE
     Dosage: 2.55 MILLIGRAM, 3/WEEK
     Route: 042
     Dates: start: 20150727, end: 20150802
  24. TEDUGLUTIDE [Suspect]
     Active Substance: TEDUGLUTIDE
     Dosage: 2.55 MILLIGRAM, 3/WEEK
     Route: 042
     Dates: start: 20150727, end: 20150802
  25. TEDUGLUTIDE [Suspect]
     Active Substance: TEDUGLUTIDE
     Dosage: 2.55 MILLIGRAM, 4/WEEK
     Route: 042
     Dates: start: 20150803, end: 20150809
  26. TEDUGLUTIDE [Suspect]
     Active Substance: TEDUGLUTIDE
     Dosage: 2.55 MILLIGRAM, 4/WEEK
     Route: 042
     Dates: start: 20150803, end: 20150809
  27. TEDUGLUTIDE [Suspect]
     Active Substance: TEDUGLUTIDE
     Dosage: 2.55 MILLIGRAM, 4/WEEK
     Route: 042
     Dates: start: 20150803, end: 20150809
  28. TEDUGLUTIDE [Suspect]
     Active Substance: TEDUGLUTIDE
     Dosage: 2.55 MILLIGRAM, 4/WEEK
     Route: 042
     Dates: start: 20150803, end: 20150809
  29. TEDUGLUTIDE [Suspect]
     Active Substance: TEDUGLUTIDE
     Dosage: 2.55 MILLIGRAM, 3/WEEK
     Route: 042
     Dates: start: 20150810, end: 20150816
  30. TEDUGLUTIDE [Suspect]
     Active Substance: TEDUGLUTIDE
     Dosage: 2.55 MILLIGRAM, 3/WEEK
     Route: 042
     Dates: start: 20150810, end: 20150816
  31. TEDUGLUTIDE [Suspect]
     Active Substance: TEDUGLUTIDE
     Dosage: 2.55 MILLIGRAM, 3/WEEK
     Route: 042
     Dates: start: 20150810, end: 20150816
  32. TEDUGLUTIDE [Suspect]
     Active Substance: TEDUGLUTIDE
     Dosage: 2.55 MILLIGRAM, 3/WEEK
     Route: 042
     Dates: start: 20150810, end: 20150816
  33. TEDUGLUTIDE [Suspect]
     Active Substance: TEDUGLUTIDE
     Dosage: 2.55 MILLIGRAM, 4/WEEK
     Route: 042
     Dates: start: 20150817, end: 20150823
  34. TEDUGLUTIDE [Suspect]
     Active Substance: TEDUGLUTIDE
     Dosage: 2.55 MILLIGRAM, 4/WEEK
     Route: 042
     Dates: start: 20150817, end: 20150823
  35. TEDUGLUTIDE [Suspect]
     Active Substance: TEDUGLUTIDE
     Dosage: 2.55 MILLIGRAM, 4/WEEK
     Route: 042
     Dates: start: 20150817, end: 20150823
  36. TEDUGLUTIDE [Suspect]
     Active Substance: TEDUGLUTIDE
     Dosage: 2.55 MILLIGRAM, 4/WEEK
     Route: 042
     Dates: start: 20150817, end: 20150823
  37. TEDUGLUTIDE [Suspect]
     Active Substance: TEDUGLUTIDE
     Dosage: 2.55 MILLIGRAM, 3/WEEK
     Route: 042
     Dates: start: 20150824, end: 20150830
  38. TEDUGLUTIDE [Suspect]
     Active Substance: TEDUGLUTIDE
     Dosage: 2.55 MILLIGRAM, 3/WEEK
     Route: 042
     Dates: start: 20150824, end: 20150830
  39. TEDUGLUTIDE [Suspect]
     Active Substance: TEDUGLUTIDE
     Dosage: 2.55 MILLIGRAM, 3/WEEK
     Route: 042
     Dates: start: 20150824, end: 20150830
  40. TEDUGLUTIDE [Suspect]
     Active Substance: TEDUGLUTIDE
     Dosage: 2.55 MILLIGRAM, 3/WEEK
     Route: 042
     Dates: start: 20150824, end: 20150830
  41. TEDUGLUTIDE [Suspect]
     Active Substance: TEDUGLUTIDE
     Dosage: 2.55 MILLIGRAM, 4/WEEK
     Route: 042
     Dates: start: 20150831, end: 20150906
  42. TEDUGLUTIDE [Suspect]
     Active Substance: TEDUGLUTIDE
     Dosage: 2.55 MILLIGRAM, 4/WEEK
     Route: 042
     Dates: start: 20150831, end: 20150906
  43. TEDUGLUTIDE [Suspect]
     Active Substance: TEDUGLUTIDE
     Dosage: 2.55 MILLIGRAM, 4/WEEK
     Route: 042
     Dates: start: 20150831, end: 20150906
  44. TEDUGLUTIDE [Suspect]
     Active Substance: TEDUGLUTIDE
     Dosage: 2.55 MILLIGRAM, 4/WEEK
     Route: 042
     Dates: start: 20150831, end: 20150906
  45. TEDUGLUTIDE [Suspect]
     Active Substance: TEDUGLUTIDE
     Dosage: 2.55 MILLIGRAM, 3/WEEK
     Route: 042
     Dates: start: 20150907, end: 20150913
  46. TEDUGLUTIDE [Suspect]
     Active Substance: TEDUGLUTIDE
     Dosage: 2.55 MILLIGRAM, 3/WEEK
     Route: 042
     Dates: start: 20150907, end: 20150913
  47. TEDUGLUTIDE [Suspect]
     Active Substance: TEDUGLUTIDE
     Dosage: 2.55 MILLIGRAM, 3/WEEK
     Route: 042
     Dates: start: 20150907, end: 20150913
  48. TEDUGLUTIDE [Suspect]
     Active Substance: TEDUGLUTIDE
     Dosage: 2.55 MILLIGRAM, 3/WEEK
     Route: 042
     Dates: start: 20150907, end: 20150913
  49. TEDUGLUTIDE [Suspect]
     Active Substance: TEDUGLUTIDE
     Dosage: 2.55 MILLIGRAM, 4/WEEK
     Route: 042
     Dates: start: 20150914, end: 20150920
  50. TEDUGLUTIDE [Suspect]
     Active Substance: TEDUGLUTIDE
     Dosage: 2.55 MILLIGRAM, 4/WEEK
     Route: 042
     Dates: start: 20150914, end: 20150920
  51. TEDUGLUTIDE [Suspect]
     Active Substance: TEDUGLUTIDE
     Dosage: 2.55 MILLIGRAM, 4/WEEK
     Route: 042
     Dates: start: 20150914, end: 20150920
  52. TEDUGLUTIDE [Suspect]
     Active Substance: TEDUGLUTIDE
     Dosage: 2.55 MILLIGRAM, 4/WEEK
     Route: 042
     Dates: start: 20150914, end: 20150920
  53. TEDUGLUTIDE [Suspect]
     Active Substance: TEDUGLUTIDE
     Dosage: 2.55 MILLIGRAM, 3/WEEK
     Route: 042
     Dates: start: 20150921, end: 20150927
  54. TEDUGLUTIDE [Suspect]
     Active Substance: TEDUGLUTIDE
     Dosage: 2.55 MILLIGRAM, 3/WEEK
     Route: 042
     Dates: start: 20150921, end: 20150927
  55. TEDUGLUTIDE [Suspect]
     Active Substance: TEDUGLUTIDE
     Dosage: 2.55 MILLIGRAM, 3/WEEK
     Route: 042
     Dates: start: 20150921, end: 20150927
  56. TEDUGLUTIDE [Suspect]
     Active Substance: TEDUGLUTIDE
     Dosage: 2.55 MILLIGRAM, 3/WEEK
     Route: 042
     Dates: start: 20150921, end: 20150927
  57. TEDUGLUTIDE [Suspect]
     Active Substance: TEDUGLUTIDE
     Dosage: 2.55 MILLIGRAM, 4/WEEK
     Route: 042
     Dates: start: 20150928, end: 20151004
  58. TEDUGLUTIDE [Suspect]
     Active Substance: TEDUGLUTIDE
     Dosage: 2.55 MILLIGRAM, 4/WEEK
     Route: 042
     Dates: start: 20150928, end: 20151004
  59. TEDUGLUTIDE [Suspect]
     Active Substance: TEDUGLUTIDE
     Dosage: 2.55 MILLIGRAM, 4/WEEK
     Route: 042
     Dates: start: 20150928, end: 20151004
  60. TEDUGLUTIDE [Suspect]
     Active Substance: TEDUGLUTIDE
     Dosage: 2.55 MILLIGRAM, 4/WEEK
     Route: 042
     Dates: start: 20150928, end: 20151004
  61. TEDUGLUTIDE [Suspect]
     Active Substance: TEDUGLUTIDE
     Dosage: 2.55 MILLIGRAM, 3/WEEK
     Route: 042
     Dates: start: 20151005, end: 20151011
  62. TEDUGLUTIDE [Suspect]
     Active Substance: TEDUGLUTIDE
     Dosage: 2.55 MILLIGRAM, 3/WEEK
     Route: 042
     Dates: start: 20151005, end: 20151011
  63. TEDUGLUTIDE [Suspect]
     Active Substance: TEDUGLUTIDE
     Dosage: 2.55 MILLIGRAM, 3/WEEK
     Route: 042
     Dates: start: 20151005, end: 20151011
  64. TEDUGLUTIDE [Suspect]
     Active Substance: TEDUGLUTIDE
     Dosage: 2.55 MILLIGRAM, 3/WEEK
     Route: 042
     Dates: start: 20151005, end: 20151011
  65. TEDUGLUTIDE [Suspect]
     Active Substance: TEDUGLUTIDE
     Dosage: 2.55 MILLIGRAM, 4/WEEK
     Route: 042
     Dates: start: 20151012, end: 20151018
  66. TEDUGLUTIDE [Suspect]
     Active Substance: TEDUGLUTIDE
     Dosage: 2.55 MILLIGRAM, 4/WEEK
     Route: 042
     Dates: start: 20151012, end: 20151018
  67. TEDUGLUTIDE [Suspect]
     Active Substance: TEDUGLUTIDE
     Dosage: 2.55 MILLIGRAM, 4/WEEK
     Route: 042
     Dates: start: 20151012, end: 20151018
  68. TEDUGLUTIDE [Suspect]
     Active Substance: TEDUGLUTIDE
     Dosage: 2.55 MILLIGRAM, 4/WEEK
     Route: 042
     Dates: start: 20151012, end: 20151018
  69. TEDUGLUTIDE [Suspect]
     Active Substance: TEDUGLUTIDE
     Dosage: 2.55 MILLIGRAM, 3/WEEK
     Route: 042
     Dates: start: 20151019, end: 20151025
  70. TEDUGLUTIDE [Suspect]
     Active Substance: TEDUGLUTIDE
     Dosage: 2.55 MILLIGRAM, 3/WEEK
     Route: 042
     Dates: start: 20151019, end: 20151025
  71. TEDUGLUTIDE [Suspect]
     Active Substance: TEDUGLUTIDE
     Dosage: 2.55 MILLIGRAM, 3/WEEK
     Route: 042
     Dates: start: 20151019, end: 20151025
  72. TEDUGLUTIDE [Suspect]
     Active Substance: TEDUGLUTIDE
     Dosage: 2.55 MILLIGRAM, 3/WEEK
     Route: 042
     Dates: start: 20151019, end: 20151025
  73. TEDUGLUTIDE [Suspect]
     Active Substance: TEDUGLUTIDE
     Dosage: 2.55 MILLIGRAM, 4/WEEK
     Route: 042
     Dates: start: 20151026, end: 20151101
  74. TEDUGLUTIDE [Suspect]
     Active Substance: TEDUGLUTIDE
     Dosage: 2.55 MILLIGRAM, 4/WEEK
     Route: 042
     Dates: start: 20151026, end: 20151101
  75. TEDUGLUTIDE [Suspect]
     Active Substance: TEDUGLUTIDE
     Dosage: 2.55 MILLIGRAM, 4/WEEK
     Route: 042
     Dates: start: 20151026, end: 20151101
  76. TEDUGLUTIDE [Suspect]
     Active Substance: TEDUGLUTIDE
     Dosage: 2.55 MILLIGRAM, 4/WEEK
     Route: 042
     Dates: start: 20151026, end: 20151101
  77. TEDUGLUTIDE [Suspect]
     Active Substance: TEDUGLUTIDE
     Dosage: 2.55 MILLIGRAM, 3/WEEK
     Route: 042
     Dates: start: 20151102, end: 20151108
  78. TEDUGLUTIDE [Suspect]
     Active Substance: TEDUGLUTIDE
     Dosage: 2.55 MILLIGRAM, 3/WEEK
     Route: 042
     Dates: start: 20151102, end: 20151108
  79. TEDUGLUTIDE [Suspect]
     Active Substance: TEDUGLUTIDE
     Dosage: 2.55 MILLIGRAM, 3/WEEK
     Route: 042
     Dates: start: 20151102, end: 20151108
  80. TEDUGLUTIDE [Suspect]
     Active Substance: TEDUGLUTIDE
     Dosage: 2.55 MILLIGRAM, 3/WEEK
     Route: 042
     Dates: start: 20151102, end: 20151108
  81. TEDUGLUTIDE [Suspect]
     Active Substance: TEDUGLUTIDE
     Dosage: 2.55 MILLIGRAM, 4/WEEK
     Route: 042
     Dates: start: 20151109, end: 20151115
  82. TEDUGLUTIDE [Suspect]
     Active Substance: TEDUGLUTIDE
     Dosage: 2.55 MILLIGRAM, 4/WEEK
     Route: 042
     Dates: start: 20151109, end: 20151115
  83. TEDUGLUTIDE [Suspect]
     Active Substance: TEDUGLUTIDE
     Dosage: 2.55 MILLIGRAM, 4/WEEK
     Route: 042
     Dates: start: 20151109, end: 20151115
  84. TEDUGLUTIDE [Suspect]
     Active Substance: TEDUGLUTIDE
     Dosage: 2.55 MILLIGRAM, 4/WEEK
     Route: 042
     Dates: start: 20151109, end: 20151115
  85. TEDUGLUTIDE [Suspect]
     Active Substance: TEDUGLUTIDE
     Dosage: 2.55 MILLIGRAM, 3/WEEK
     Route: 042
     Dates: start: 20151116, end: 20151122
  86. TEDUGLUTIDE [Suspect]
     Active Substance: TEDUGLUTIDE
     Dosage: 2.55 MILLIGRAM, 3/WEEK
     Route: 042
     Dates: start: 20151116, end: 20151122
  87. TEDUGLUTIDE [Suspect]
     Active Substance: TEDUGLUTIDE
     Dosage: 2.55 MILLIGRAM, 3/WEEK
     Route: 042
     Dates: start: 20151116, end: 20151122
  88. TEDUGLUTIDE [Suspect]
     Active Substance: TEDUGLUTIDE
     Dosage: 2.55 MILLIGRAM, 3/WEEK
     Route: 042
     Dates: start: 20151116, end: 20151122
  89. TEDUGLUTIDE [Suspect]
     Active Substance: TEDUGLUTIDE
     Dosage: 2.55 MILLIGRAM, 4/WEEK
     Route: 042
     Dates: start: 20151123, end: 20151129
  90. TEDUGLUTIDE [Suspect]
     Active Substance: TEDUGLUTIDE
     Dosage: 2.55 MILLIGRAM, 4/WEEK
     Route: 042
     Dates: start: 20151123, end: 20151129
  91. TEDUGLUTIDE [Suspect]
     Active Substance: TEDUGLUTIDE
     Dosage: 2.55 MILLIGRAM, 4/WEEK
     Route: 042
     Dates: start: 20151123, end: 20151129
  92. TEDUGLUTIDE [Suspect]
     Active Substance: TEDUGLUTIDE
     Dosage: 2.55 MILLIGRAM, 4/WEEK
     Route: 042
     Dates: start: 20151123, end: 20151129
  93. TEDUGLUTIDE [Suspect]
     Active Substance: TEDUGLUTIDE
     Dosage: 2.55 MILLIGRAM, 3/WEEK
     Route: 042
     Dates: start: 20151130, end: 20151206
  94. TEDUGLUTIDE [Suspect]
     Active Substance: TEDUGLUTIDE
     Dosage: 2.55 MILLIGRAM, 3/WEEK
     Route: 042
     Dates: start: 20151130, end: 20151206
  95. TEDUGLUTIDE [Suspect]
     Active Substance: TEDUGLUTIDE
     Dosage: 2.55 MILLIGRAM, 3/WEEK
     Route: 042
     Dates: start: 20151130, end: 20151206
  96. TEDUGLUTIDE [Suspect]
     Active Substance: TEDUGLUTIDE
     Dosage: 2.55 MILLIGRAM, 3/WEEK
     Route: 042
     Dates: start: 20151130, end: 20151206
  97. TEDUGLUTIDE [Suspect]
     Active Substance: TEDUGLUTIDE
     Dosage: 2.55 MILLIGRAM, 4/WEEK
     Route: 042
     Dates: start: 20151207, end: 20151213
  98. TEDUGLUTIDE [Suspect]
     Active Substance: TEDUGLUTIDE
     Dosage: 2.55 MILLIGRAM, 4/WEEK
     Route: 042
     Dates: start: 20151207, end: 20151213
  99. TEDUGLUTIDE [Suspect]
     Active Substance: TEDUGLUTIDE
     Dosage: 2.55 MILLIGRAM, 4/WEEK
     Route: 042
     Dates: start: 20151207, end: 20151213
  100. TEDUGLUTIDE [Suspect]
     Active Substance: TEDUGLUTIDE
     Dosage: 2.55 MILLIGRAM, 4/WEEK
     Route: 042
     Dates: start: 20151207, end: 20151213
  101. TEDUGLUTIDE [Suspect]
     Active Substance: TEDUGLUTIDE
     Dosage: 2.55 MILLIGRAM, 3/WEEK
     Route: 042
     Dates: start: 20151214, end: 20151220
  102. TEDUGLUTIDE [Suspect]
     Active Substance: TEDUGLUTIDE
     Dosage: 2.55 MILLIGRAM, 3/WEEK
     Route: 042
     Dates: start: 20151214, end: 20151220
  103. TEDUGLUTIDE [Suspect]
     Active Substance: TEDUGLUTIDE
     Dosage: 2.55 MILLIGRAM, 3/WEEK
     Route: 042
     Dates: start: 20151214, end: 20151220
  104. TEDUGLUTIDE [Suspect]
     Active Substance: TEDUGLUTIDE
     Dosage: 2.55 MILLIGRAM, 3/WEEK
     Route: 042
     Dates: start: 20151214, end: 20151220
  105. TEDUGLUTIDE [Suspect]
     Active Substance: TEDUGLUTIDE
     Dosage: 2.55 MILLIGRAM, 4/WEEK
     Route: 042
     Dates: start: 20151221, end: 20151227
  106. TEDUGLUTIDE [Suspect]
     Active Substance: TEDUGLUTIDE
     Dosage: 2.55 MILLIGRAM, 4/WEEK
     Route: 042
     Dates: start: 20151221, end: 20151227
  107. TEDUGLUTIDE [Suspect]
     Active Substance: TEDUGLUTIDE
     Dosage: 2.55 MILLIGRAM, 4/WEEK
     Route: 042
     Dates: start: 20151221, end: 20151227
  108. TEDUGLUTIDE [Suspect]
     Active Substance: TEDUGLUTIDE
     Dosage: 2.55 MILLIGRAM, 4/WEEK
     Route: 042
     Dates: start: 20151221, end: 20151227
  109. TEDUGLUTIDE [Suspect]
     Active Substance: TEDUGLUTIDE
     Dosage: 2.55 MILLIGRAM, 3/WEEK
     Route: 042
     Dates: start: 20151228, end: 20160103
  110. TEDUGLUTIDE [Suspect]
     Active Substance: TEDUGLUTIDE
     Dosage: 2.55 MILLIGRAM, 3/WEEK
     Route: 042
     Dates: start: 20151228, end: 20160103
  111. TEDUGLUTIDE [Suspect]
     Active Substance: TEDUGLUTIDE
     Dosage: 2.55 MILLIGRAM, 3/WEEK
     Route: 042
     Dates: start: 20151228, end: 20160103
  112. TEDUGLUTIDE [Suspect]
     Active Substance: TEDUGLUTIDE
     Dosage: 2.55 MILLIGRAM, 3/WEEK
     Route: 042
     Dates: start: 20151228, end: 20160103
  113. TEDUGLUTIDE [Suspect]
     Active Substance: TEDUGLUTIDE
     Dosage: 2.55 MILLIGRAM, 4/WEEK
     Route: 042
     Dates: start: 20160104, end: 20160110
  114. TEDUGLUTIDE [Suspect]
     Active Substance: TEDUGLUTIDE
     Dosage: 2.55 MILLIGRAM, 4/WEEK
     Route: 042
     Dates: start: 20160104, end: 20160110
  115. TEDUGLUTIDE [Suspect]
     Active Substance: TEDUGLUTIDE
     Dosage: 2.55 MILLIGRAM, 4/WEEK
     Route: 042
     Dates: start: 20160104, end: 20160110
  116. TEDUGLUTIDE [Suspect]
     Active Substance: TEDUGLUTIDE
     Dosage: 2.55 MILLIGRAM, 4/WEEK
     Route: 042
     Dates: start: 20160104, end: 20160110
  117. TEDUGLUTIDE [Suspect]
     Active Substance: TEDUGLUTIDE
     Dosage: 2.55 MILLIGRAM, 3/WEEK
     Route: 042
     Dates: start: 20160111, end: 20160117
  118. TEDUGLUTIDE [Suspect]
     Active Substance: TEDUGLUTIDE
     Dosage: 2.55 MILLIGRAM, 3/WEEK
     Route: 042
     Dates: start: 20160111, end: 20160117
  119. TEDUGLUTIDE [Suspect]
     Active Substance: TEDUGLUTIDE
     Dosage: 2.55 MILLIGRAM, 3/WEEK
     Route: 042
     Dates: start: 20160111, end: 20160117
  120. TEDUGLUTIDE [Suspect]
     Active Substance: TEDUGLUTIDE
     Dosage: 2.55 MILLIGRAM, 3/WEEK
     Route: 042
     Dates: start: 20160111, end: 20160117
  121. TEDUGLUTIDE [Suspect]
     Active Substance: TEDUGLUTIDE
     Dosage: 2.55 MILLIGRAM, 4/WEEK
     Route: 042
     Dates: start: 20160118, end: 20160124
  122. TEDUGLUTIDE [Suspect]
     Active Substance: TEDUGLUTIDE
     Dosage: 2.55 MILLIGRAM, 4/WEEK
     Route: 042
     Dates: start: 20160118, end: 20160124
  123. TEDUGLUTIDE [Suspect]
     Active Substance: TEDUGLUTIDE
     Dosage: 2.55 MILLIGRAM, 4/WEEK
     Route: 042
     Dates: start: 20160118, end: 20160124
  124. TEDUGLUTIDE [Suspect]
     Active Substance: TEDUGLUTIDE
     Dosage: 2.55 MILLIGRAM, 4/WEEK
     Route: 042
     Dates: start: 20160118, end: 20160124
  125. TEDUGLUTIDE [Suspect]
     Active Substance: TEDUGLUTIDE
     Dosage: 2.55 MILLIGRAM, 3/WEEK
     Route: 042
     Dates: start: 20160125, end: 20160131
  126. TEDUGLUTIDE [Suspect]
     Active Substance: TEDUGLUTIDE
     Dosage: 2.55 MILLIGRAM, 3/WEEK
     Route: 042
     Dates: start: 20160125, end: 20160131
  127. TEDUGLUTIDE [Suspect]
     Active Substance: TEDUGLUTIDE
     Dosage: 2.55 MILLIGRAM, 3/WEEK
     Route: 042
     Dates: start: 20160125, end: 20160131
  128. TEDUGLUTIDE [Suspect]
     Active Substance: TEDUGLUTIDE
     Dosage: 2.55 MILLIGRAM, 3/WEEK
     Route: 042
     Dates: start: 20160125, end: 20160131
  129. TEDUGLUTIDE [Suspect]
     Active Substance: TEDUGLUTIDE
     Dosage: 2.55 MILLIGRAM, 4/WEEK
     Route: 042
     Dates: start: 20160201, end: 20160207
  130. TEDUGLUTIDE [Suspect]
     Active Substance: TEDUGLUTIDE
     Dosage: 2.55 MILLIGRAM, 4/WEEK
     Route: 042
     Dates: start: 20160201, end: 20160207
  131. TEDUGLUTIDE [Suspect]
     Active Substance: TEDUGLUTIDE
     Dosage: 2.55 MILLIGRAM, 4/WEEK
     Route: 042
     Dates: start: 20160201, end: 20160207
  132. TEDUGLUTIDE [Suspect]
     Active Substance: TEDUGLUTIDE
     Dosage: 2.55 MILLIGRAM, 4/WEEK
     Route: 042
     Dates: start: 20160201, end: 20160207
  133. TEDUGLUTIDE [Suspect]
     Active Substance: TEDUGLUTIDE
     Dosage: 2.55 MILLIGRAM, 3/WEEK
     Route: 042
     Dates: start: 20160208, end: 20160214
  134. TEDUGLUTIDE [Suspect]
     Active Substance: TEDUGLUTIDE
     Dosage: 2.55 MILLIGRAM, 3/WEEK
     Route: 042
     Dates: start: 20160208, end: 20160214
  135. TEDUGLUTIDE [Suspect]
     Active Substance: TEDUGLUTIDE
     Dosage: 2.55 MILLIGRAM, 3/WEEK
     Route: 042
     Dates: start: 20160208, end: 20160214
  136. TEDUGLUTIDE [Suspect]
     Active Substance: TEDUGLUTIDE
     Dosage: 2.55 MILLIGRAM, 3/WEEK
     Route: 042
     Dates: start: 20160208, end: 20160214
  137. TEDUGLUTIDE [Suspect]
     Active Substance: TEDUGLUTIDE
     Dosage: 2.55 MILLIGRAM, 4/WEEK
     Route: 042
     Dates: start: 20160215, end: 20160221
  138. TEDUGLUTIDE [Suspect]
     Active Substance: TEDUGLUTIDE
     Dosage: 2.55 MILLIGRAM, 4/WEEK
     Route: 042
     Dates: start: 20160215, end: 20160221
  139. TEDUGLUTIDE [Suspect]
     Active Substance: TEDUGLUTIDE
     Dosage: 2.55 MILLIGRAM, 4/WEEK
     Route: 042
     Dates: start: 20160215, end: 20160221
  140. TEDUGLUTIDE [Suspect]
     Active Substance: TEDUGLUTIDE
     Dosage: 2.55 MILLIGRAM, 4/WEEK
     Route: 042
     Dates: start: 20160215, end: 20160221
  141. TEDUGLUTIDE [Suspect]
     Active Substance: TEDUGLUTIDE
     Dosage: 2.55 MILLIGRAM, 3/WEEK
     Route: 042
     Dates: start: 20160222, end: 20160228
  142. TEDUGLUTIDE [Suspect]
     Active Substance: TEDUGLUTIDE
     Dosage: 2.55 MILLIGRAM, 3/WEEK
     Route: 042
     Dates: start: 20160222, end: 20160228
  143. TEDUGLUTIDE [Suspect]
     Active Substance: TEDUGLUTIDE
     Dosage: 2.55 MILLIGRAM, 3/WEEK
     Route: 042
     Dates: start: 20160222, end: 20160228
  144. TEDUGLUTIDE [Suspect]
     Active Substance: TEDUGLUTIDE
     Dosage: 2.55 MILLIGRAM, 3/WEEK
     Route: 042
     Dates: start: 20160222, end: 20160228
  145. TEDUGLUTIDE [Suspect]
     Active Substance: TEDUGLUTIDE
     Dosage: 2.55 MILLIGRAM, 4/WEEK
     Route: 042
     Dates: start: 20160229, end: 20160306
  146. TEDUGLUTIDE [Suspect]
     Active Substance: TEDUGLUTIDE
     Dosage: 2.55 MILLIGRAM, 4/WEEK
     Route: 042
     Dates: start: 20160229, end: 20160306
  147. TEDUGLUTIDE [Suspect]
     Active Substance: TEDUGLUTIDE
     Dosage: 2.55 MILLIGRAM, 4/WEEK
     Route: 042
     Dates: start: 20160229, end: 20160306
  148. TEDUGLUTIDE [Suspect]
     Active Substance: TEDUGLUTIDE
     Dosage: 2.55 MILLIGRAM, 4/WEEK
     Route: 042
     Dates: start: 20160229, end: 20160306
  149. TEDUGLUTIDE [Suspect]
     Active Substance: TEDUGLUTIDE
     Dosage: 2.55 MILLIGRAM, 3/WEEK
     Route: 042
     Dates: start: 20160307, end: 20160313
  150. TEDUGLUTIDE [Suspect]
     Active Substance: TEDUGLUTIDE
     Dosage: 2.55 MILLIGRAM, 3/WEEK
     Route: 042
     Dates: start: 20160307, end: 20160313
  151. TEDUGLUTIDE [Suspect]
     Active Substance: TEDUGLUTIDE
     Dosage: 2.55 MILLIGRAM, 3/WEEK
     Route: 042
     Dates: start: 20160307, end: 20160313
  152. TEDUGLUTIDE [Suspect]
     Active Substance: TEDUGLUTIDE
     Dosage: 2.55 MILLIGRAM, 3/WEEK
     Route: 042
     Dates: start: 20160307, end: 20160313
  153. TEDUGLUTIDE [Suspect]
     Active Substance: TEDUGLUTIDE
     Dosage: 2.55 MILLIGRAM, 4/WEEK
     Route: 042
     Dates: start: 20160314, end: 20160320
  154. TEDUGLUTIDE [Suspect]
     Active Substance: TEDUGLUTIDE
     Dosage: 2.55 MILLIGRAM, 4/WEEK
     Route: 042
     Dates: start: 20160314, end: 20160320
  155. TEDUGLUTIDE [Suspect]
     Active Substance: TEDUGLUTIDE
     Dosage: 2.55 MILLIGRAM, 4/WEEK
     Route: 042
     Dates: start: 20160314, end: 20160320
  156. TEDUGLUTIDE [Suspect]
     Active Substance: TEDUGLUTIDE
     Dosage: 2.55 MILLIGRAM, 4/WEEK
     Route: 042
     Dates: start: 20160314, end: 20160320
  157. TEDUGLUTIDE [Suspect]
     Active Substance: TEDUGLUTIDE
     Dosage: 2.55 MILLIGRAM, 3/WEEK
     Route: 042
     Dates: start: 20160321, end: 20160327
  158. TEDUGLUTIDE [Suspect]
     Active Substance: TEDUGLUTIDE
     Dosage: 2.55 MILLIGRAM, 3/WEEK
     Route: 042
     Dates: start: 20160321, end: 20160327
  159. TEDUGLUTIDE [Suspect]
     Active Substance: TEDUGLUTIDE
     Dosage: 2.55 MILLIGRAM, 3/WEEK
     Route: 042
     Dates: start: 20160321, end: 20160327
  160. TEDUGLUTIDE [Suspect]
     Active Substance: TEDUGLUTIDE
     Dosage: 2.55 MILLIGRAM, 3/WEEK
     Route: 042
     Dates: start: 20160321, end: 20160327
  161. TEDUGLUTIDE [Suspect]
     Active Substance: TEDUGLUTIDE
     Dosage: 2.55 MILLIGRAM, 4/WEEK
     Route: 042
     Dates: start: 20160328, end: 20160403
  162. TEDUGLUTIDE [Suspect]
     Active Substance: TEDUGLUTIDE
     Dosage: 2.55 MILLIGRAM, 4/WEEK
     Route: 042
     Dates: start: 20160328, end: 20160403
  163. TEDUGLUTIDE [Suspect]
     Active Substance: TEDUGLUTIDE
     Dosage: 2.55 MILLIGRAM, 4/WEEK
     Route: 042
     Dates: start: 20160328, end: 20160403
  164. TEDUGLUTIDE [Suspect]
     Active Substance: TEDUGLUTIDE
     Dosage: 2.55 MILLIGRAM, 4/WEEK
     Route: 042
     Dates: start: 20160328, end: 20160403
  165. TEDUGLUTIDE [Suspect]
     Active Substance: TEDUGLUTIDE
     Dosage: 2.55 MILLIGRAM, 3/WEEK
     Route: 042
     Dates: start: 20160404, end: 20160410
  166. TEDUGLUTIDE [Suspect]
     Active Substance: TEDUGLUTIDE
     Dosage: 2.55 MILLIGRAM, 3/WEEK
     Route: 042
     Dates: start: 20160404, end: 20160410
  167. TEDUGLUTIDE [Suspect]
     Active Substance: TEDUGLUTIDE
     Dosage: 2.55 MILLIGRAM, 3/WEEK
     Route: 042
     Dates: start: 20160404, end: 20160410
  168. TEDUGLUTIDE [Suspect]
     Active Substance: TEDUGLUTIDE
     Dosage: 2.55 MILLIGRAM, 3/WEEK
     Route: 042
     Dates: start: 20160404, end: 20160410
  169. TEDUGLUTIDE [Suspect]
     Active Substance: TEDUGLUTIDE
     Dosage: 2.55 MILLIGRAM, 4/WEEK
     Route: 042
     Dates: start: 20160411, end: 20160417
  170. TEDUGLUTIDE [Suspect]
     Active Substance: TEDUGLUTIDE
     Dosage: 2.55 MILLIGRAM, 4/WEEK
     Route: 042
     Dates: start: 20160411, end: 20160417
  171. TEDUGLUTIDE [Suspect]
     Active Substance: TEDUGLUTIDE
     Dosage: 2.55 MILLIGRAM, 4/WEEK
     Route: 042
     Dates: start: 20160411, end: 20160417
  172. TEDUGLUTIDE [Suspect]
     Active Substance: TEDUGLUTIDE
     Dosage: 2.55 MILLIGRAM, 4/WEEK
     Route: 042
     Dates: start: 20160411, end: 20160417
  173. TEDUGLUTIDE [Suspect]
     Active Substance: TEDUGLUTIDE
     Dosage: 2.55 MILLIGRAM, 3/WEEK
     Route: 042
     Dates: start: 20160418, end: 20160424
  174. TEDUGLUTIDE [Suspect]
     Active Substance: TEDUGLUTIDE
     Dosage: 2.55 MILLIGRAM, 3/WEEK
     Route: 042
     Dates: start: 20160418, end: 20160424
  175. TEDUGLUTIDE [Suspect]
     Active Substance: TEDUGLUTIDE
     Dosage: 2.55 MILLIGRAM, 3/WEEK
     Route: 042
     Dates: start: 20160418, end: 20160424
  176. TEDUGLUTIDE [Suspect]
     Active Substance: TEDUGLUTIDE
     Dosage: 2.55 MILLIGRAM, 3/WEEK
     Route: 042
     Dates: start: 20160418, end: 20160424
  177. TEDUGLUTIDE [Suspect]
     Active Substance: TEDUGLUTIDE
     Dosage: 2.55 MILLIGRAM, 4/WEEK
     Route: 042
     Dates: start: 20160425, end: 20160501
  178. TEDUGLUTIDE [Suspect]
     Active Substance: TEDUGLUTIDE
     Dosage: 2.55 MILLIGRAM, 4/WEEK
     Route: 042
     Dates: start: 20160425, end: 20160501
  179. TEDUGLUTIDE [Suspect]
     Active Substance: TEDUGLUTIDE
     Dosage: 2.55 MILLIGRAM, 4/WEEK
     Route: 042
     Dates: start: 20160425, end: 20160501
  180. TEDUGLUTIDE [Suspect]
     Active Substance: TEDUGLUTIDE
     Dosage: 2.55 MILLIGRAM, 4/WEEK
     Route: 042
     Dates: start: 20160425, end: 20160501
  181. TEDUGLUTIDE [Suspect]
     Active Substance: TEDUGLUTIDE
     Dosage: 2.55 MILLIGRAM, 3/WEEK
     Route: 042
     Dates: start: 20160502, end: 20160508
  182. TEDUGLUTIDE [Suspect]
     Active Substance: TEDUGLUTIDE
     Dosage: 2.55 MILLIGRAM, 3/WEEK
     Route: 042
     Dates: start: 20160502, end: 20160508
  183. TEDUGLUTIDE [Suspect]
     Active Substance: TEDUGLUTIDE
     Dosage: 2.55 MILLIGRAM, 3/WEEK
     Route: 042
     Dates: start: 20160502, end: 20160508
  184. TEDUGLUTIDE [Suspect]
     Active Substance: TEDUGLUTIDE
     Dosage: 2.55 MILLIGRAM, 3/WEEK
     Route: 042
     Dates: start: 20160502, end: 20160508
  185. TEDUGLUTIDE [Suspect]
     Active Substance: TEDUGLUTIDE
     Dosage: 2.55 MILLIGRAM, 4/WEEK
     Route: 042
     Dates: start: 20160509, end: 20160515
  186. TEDUGLUTIDE [Suspect]
     Active Substance: TEDUGLUTIDE
     Dosage: 2.55 MILLIGRAM, 4/WEEK
     Route: 042
     Dates: start: 20160509, end: 20160515
  187. TEDUGLUTIDE [Suspect]
     Active Substance: TEDUGLUTIDE
     Dosage: 2.55 MILLIGRAM, 4/WEEK
     Route: 042
     Dates: start: 20160509, end: 20160515
  188. TEDUGLUTIDE [Suspect]
     Active Substance: TEDUGLUTIDE
     Dosage: 2.55 MILLIGRAM, 4/WEEK
     Route: 042
     Dates: start: 20160509, end: 20160515
  189. TEDUGLUTIDE [Suspect]
     Active Substance: TEDUGLUTIDE
     Dosage: 2.55 MILLIGRAM, 3/WEEK
     Route: 042
     Dates: start: 20160516, end: 20160522
  190. TEDUGLUTIDE [Suspect]
     Active Substance: TEDUGLUTIDE
     Dosage: 2.55 MILLIGRAM, 3/WEEK
     Route: 042
     Dates: start: 20160516, end: 20160522
  191. TEDUGLUTIDE [Suspect]
     Active Substance: TEDUGLUTIDE
     Dosage: 2.55 MILLIGRAM, 3/WEEK
     Route: 042
     Dates: start: 20160516, end: 20160522
  192. TEDUGLUTIDE [Suspect]
     Active Substance: TEDUGLUTIDE
     Dosage: 2.55 MILLIGRAM, 3/WEEK
     Route: 042
     Dates: start: 20160516, end: 20160522
  193. TEDUGLUTIDE [Suspect]
     Active Substance: TEDUGLUTIDE
     Dosage: 2.55 MILLIGRAM, 4/WEEK
     Route: 042
     Dates: start: 20160523, end: 20160529
  194. TEDUGLUTIDE [Suspect]
     Active Substance: TEDUGLUTIDE
     Dosage: 2.55 MILLIGRAM, 4/WEEK
     Route: 042
     Dates: start: 20160523, end: 20160529
  195. TEDUGLUTIDE [Suspect]
     Active Substance: TEDUGLUTIDE
     Dosage: 2.55 MILLIGRAM, 4/WEEK
     Route: 042
     Dates: start: 20160523, end: 20160529
  196. TEDUGLUTIDE [Suspect]
     Active Substance: TEDUGLUTIDE
     Dosage: 2.55 MILLIGRAM, 4/WEEK
     Route: 042
     Dates: start: 20160523, end: 20160529
  197. TEDUGLUTIDE [Suspect]
     Active Substance: TEDUGLUTIDE
     Dosage: 2.55 MILLIGRAM, 3/WEEK
     Route: 042
     Dates: start: 20160530, end: 20160605
  198. TEDUGLUTIDE [Suspect]
     Active Substance: TEDUGLUTIDE
     Dosage: 2.55 MILLIGRAM, 3/WEEK
     Route: 042
     Dates: start: 20160530, end: 20160605
  199. TEDUGLUTIDE [Suspect]
     Active Substance: TEDUGLUTIDE
     Dosage: 2.55 MILLIGRAM, 3/WEEK
     Route: 042
     Dates: start: 20160530, end: 20160605
  200. TEDUGLUTIDE [Suspect]
     Active Substance: TEDUGLUTIDE
     Dosage: 2.55 MILLIGRAM, 3/WEEK
     Route: 042
     Dates: start: 20160530, end: 20160605
  201. Vigantol [Concomitant]
     Indication: Vitamin supplementation
     Dosage: UNK
     Route: 065
  202. PANTOPRAZOLE [Concomitant]
     Active Substance: PANTOPRAZOLE
     Indication: Hyperchlorhydria
     Dosage: UNK
     Route: 065
  203. PREDNISOLONE [Concomitant]
     Active Substance: PREDNISOLONE
     Indication: Rheumatoid arthritis
     Dosage: 2.5 MILLIGRAM, QD
     Route: 048
     Dates: start: 20210214, end: 20210728
  204. PREDNISOLONE [Concomitant]
     Active Substance: PREDNISOLONE
     Dosage: 5 MILLIGRAM, QD
     Route: 048
     Dates: start: 20210729, end: 202206
  205. PREDNISOLONE [Concomitant]
     Active Substance: PREDNISOLONE
     Dosage: 2.5 MILLIGRAM, QD
     Route: 048
     Dates: start: 202206
  206. MAGNESIUM [Concomitant]
     Active Substance: MAGNESIUM
     Indication: Mineral supplementation
     Dosage: UNK
     Route: 065
  207. BARICITINIB [Concomitant]
     Active Substance: BARICITINIB
     Dosage: UNK
     Route: 048
     Dates: start: 20210113
  208. VITAMIN D [Concomitant]
     Active Substance: VITAMIN D NOS
     Indication: Vitamin supplementation
     Dosage: 20000.0 INTERNATIONAL UNIT, MONTHLY
     Route: 048
     Dates: start: 202011, end: 20210112
  209. VITAMIN D [Concomitant]
     Active Substance: VITAMIN D NOS
     Dosage: 1000.00 INTERNATIONAL UNIT, QD
     Route: 048
     Dates: start: 202002
  210. VITAMIN D [Concomitant]
     Active Substance: VITAMIN D NOS
     Dosage: 2000 INTERNATIONAL UNIT, 1/WEEK
     Route: 048
     Dates: end: 2021
  211. VITAMIN D [Concomitant]
     Active Substance: VITAMIN D NOS
     Dosage: 20000 INTERNATIONAL UNIT, 1/WEEK
     Route: 048
     Dates: start: 2021
  212. Kalinor [Concomitant]
     Dosage: 600.00 MILLIGRAM, QD
     Route: 048
     Dates: start: 202008
  213. METOPROLOL [Concomitant]
     Active Substance: METOPROLOL
     Indication: Hypertension
     Dosage: 23.75 MILLIGRAM, BID
     Route: 048
     Dates: start: 20210208
  214. DENOSUMAB [Concomitant]
     Active Substance: DENOSUMAB
     Indication: Osteoporosis
     Dosage: UNK UNK, Q6MONTHS
     Route: 065
     Dates: start: 20221109

REACTIONS (1)
  - Gastrointestinal tract adenoma [Not Recovered/Not Resolved]

NARRATIVE: CASE EVENT DATE: 20180703
